FAERS Safety Report 11684340 (Version 2)
Quarter: 2015Q4

REPORT INFORMATION
  Report Type: Spontaneous
  Country: US (occurrence: US)
  Receive Date: 20151029
  Receipt Date: 20151221
  Transmission Date: 20160304
  Serious: Yes (Other)
  Sender: FDA-Public Use
  Company Number: US-SA-2015SA168354

PATIENT
  Sex: Male

DRUGS (2)
  1. AMBIEN [Suspect]
     Active Substance: ZOLPIDEM TARTRATE
     Indication: INSOMNIA
     Route: 065
     Dates: start: 20150906
  2. AMBIEN [Suspect]
     Active Substance: ZOLPIDEM TARTRATE
     Indication: INSOMNIA
     Dosage: TAKEN 6 PILLS THAT NIGHT
     Route: 065
     Dates: start: 20150907

REACTIONS (9)
  - Memory impairment [Unknown]
  - Overdose [Unknown]
  - Pain [Unknown]
  - Concussion [Unknown]
  - Psychotic behaviour [Unknown]
  - Injury [Unknown]
  - Rotator cuff syndrome [Unknown]
  - Fall [Unknown]
  - Tremor [Unknown]

NARRATIVE: CASE EVENT DATE: 20150906
